FAERS Safety Report 9748336 (Version 3)
Quarter: 2014Q2

REPORT INFORMATION
  Report Type: Spontaneous
  Country: US (occurrence: None)
  Receive Date: 20131209
  Receipt Date: 20140519
  Transmission Date: 20141212
  Serious: Yes (Death)
  Sender: FDA-Public Use
  Company Number: 2013US008035

PATIENT
  Age: 66 Year
  Sex: Female

DRUGS (8)
  1. HORIZANT [Suspect]
     Indication: PRODUCT USED FOR UNKNOWN INDICATION
     Dosage: DAILY AT BEDTIME
     Route: 048
  2. ADVAIR (FLUTICASONE PROPIONATE, SALMETEROL XINAFOATE) [Concomitant]
  3. SPIRIVA [Concomitant]
  4. PROAIR (SALBUTAMOL SULFATE) [Concomitant]
  5. ALBUTEROL (SALBUTAMOL) [Concomitant]
  6. PREDNISONE (PREDNISONE) [Concomitant]
  7. LEVOTHYROXINE (LEVOHYROXINE) [Concomitant]
  8. FOLIC ACID (FOLIC ACID) [Concomitant]

REACTIONS (3)
  - Respiratory arrest [None]
  - Respiratory failure [None]
  - Cardio-respiratory arrest [None]
